FAERS Safety Report 19364401 (Version 1)
Quarter: 2021Q2

REPORT INFORMATION
  Report Type: Spontaneous
  Country: US (occurrence: US)
  Receive Date: 20210602
  Receipt Date: 20210602
  Transmission Date: 20210717
  Serious: Yes (Other)
  Sender: FDA-Public Use
  Company Number: None

PATIENT
  Age: 28 Year
  Sex: Male
  Weight: 65.25 kg

DRUGS (8)
  1. FLAREX [Suspect]
     Active Substance: FLUOROMETHOLONE ACETATE
  2. DAILY MULTIVITAMIN [Concomitant]
     Active Substance: VITAMINS
  3. PROLENSA [Suspect]
     Active Substance: BROMFENAC SODIUM
  4. ZYRTEC [Concomitant]
     Active Substance: CETIRIZINE HYDROCHLORIDE
  5. MOXIFLOXACIN OPTHALMIC SOLUTION, USP 0.5% 3ML NDC 65862?840?0 [Suspect]
     Active Substance: MOXIFLOXACIN
     Indication: ANTIBIOTIC THERAPY
     Dosage: ?          QUANTITY:3 ML;?
     Route: 047
     Dates: start: 20210527, end: 20210601
  6. FLONASE [Concomitant]
     Active Substance: FLUTICASONE PROPIONATE
  7. FLAXSEED PILL [Concomitant]
  8. ALEVE/IBUPROFEN AS [Concomitant]

REACTIONS (3)
  - Vision blurred [None]
  - Sensation of foreign body [None]
  - Instillation site pain [None]

NARRATIVE: CASE EVENT DATE: 20210601
